FAERS Safety Report 14936365 (Version 3)
Quarter: 2018Q3

REPORT INFORMATION
  Report Type: Spontaneous
  Country: JP (occurrence: JP)
  Receive Date: 20180524
  Receipt Date: 20180814
  Transmission Date: 20181010
  Serious: Yes (Death, Hospitalization)
  Sender: FDA-Public Use
  Company Number: JP-ELI_LILLY_AND_COMPANY-JP201803013405

PATIENT
  Age: 70 Year
  Sex: Female
  Weight: 37 kg

DRUGS (13)
  1. PRASUGREL HYDROCHLORIDE [Suspect]
     Active Substance: PRASUGREL HYDROCHLORIDE
     Indication: ANGINA PECTORIS
     Dosage: 3.5 MG, DAILY
     Route: 048
     Dates: start: 20170203
  2. PRASUGREL HYDROCHLORIDE [Suspect]
     Active Substance: PRASUGREL HYDROCHLORIDE
     Dosage: 2.5 MG, DAILY
     Route: 048
     Dates: start: 20170626
  3. PRASUGREL HYDROCHLORIDE [Suspect]
     Active Substance: PRASUGREL HYDROCHLORIDE
     Dosage: UNK UNK, DAILY
     Route: 065
     Dates: start: 20170703
  4. PLETAAL [Suspect]
     Active Substance: CILOSTAZOL
     Indication: PERIPHERAL ARTERIAL OCCLUSIVE DISEASE
     Dosage: 50 MG, BID
     Route: 048
     Dates: start: 20161208, end: 20170623
  5. REVATIO [Concomitant]
     Active Substance: SILDENAFIL CITRATE
     Indication: PRODUCT USED FOR UNKNOWN INDICATION
     Dosage: 20 MG, TID
     Route: 048
     Dates: end: 20170623
  6. JUVELA                             /00110502/ [Concomitant]
     Indication: PRODUCT USED FOR UNKNOWN INDICATION
     Dosage: 100 MG, BID
     Route: 048
     Dates: end: 20170623
  7. LASIX [Concomitant]
     Active Substance: FUROSEMIDE
     Indication: PRODUCT USED FOR UNKNOWN INDICATION
     Dosage: 20 MG, BID
     Route: 048
     Dates: end: 20170623
  8. ALDACTONE A [Concomitant]
     Active Substance: SPIRONOLACTONE
     Indication: PRODUCT USED FOR UNKNOWN INDICATION
     Dosage: 25 MG, BID
     Route: 048
     Dates: end: 20170623
  9. PRASUGREL HYDROCHLORIDE [Suspect]
     Active Substance: PRASUGREL HYDROCHLORIDE
     Dosage: 2.5 MG, DAILY
     Route: 048
     Dates: start: 20170316, end: 20170623
  10. MAINTATE [Concomitant]
     Active Substance: BISOPROLOL FUMARATE
     Indication: PRODUCT USED FOR UNKNOWN INDICATION
     Dosage: .625 MG, DAILY
     Route: 048
     Dates: end: 20170623
  11. NEXIUM [Concomitant]
     Active Substance: ESOMEPRAZOLE MAGNESIUM
     Indication: PRODUCT USED FOR UNKNOWN INDICATION
     Dosage: 20 MG, DAILY
     Route: 048
     Dates: end: 20170623
  12. ACECOL                             /01277402/ [Concomitant]
     Active Substance: TEMOCAPRIL HYDROCHLORIDE
     Indication: PRODUCT USED FOR UNKNOWN INDICATION
     Dosage: 1 MG, DAILY
     Route: 048
     Dates: end: 20170623
  13. PROCYLIN [Concomitant]
     Active Substance: BERAPROST SODIUM
     Indication: PRODUCT USED FOR UNKNOWN INDICATION
     Dosage: 20 MG, TID
     Route: 048
     Dates: end: 20170623

REACTIONS (3)
  - Septic shock [Fatal]
  - Lower gastrointestinal haemorrhage [Recovering/Resolving]
  - Clostridium difficile colitis [Fatal]

NARRATIVE: CASE EVENT DATE: 20170623
